FAERS Safety Report 5342196-3 (Version None)
Quarter: 2007Q2

REPORT INFORMATION
  Report Type: 
  Country: None (occurrence: None)
  Receive Date: 20070601
  Receipt Date: 20070523
  Transmission Date: 20071010
  Serious: Yes (Death, Hospitalization)
  Sender: FDA-Public Use
  Company Number: US-ASTRAZENECA-2007UW11040

PATIENT
  Age: 54 Year
  Sex: Female
  Weight: 92.7 kg

DRUGS (10)
  1. ACCOLATE [Suspect]
     Indication: ASTHMA
     Route: 048
     Dates: start: 20030702, end: 20040509
  2. SYNTHROID [Concomitant]
     Dates: start: 20001116
  3. ZOLOFT [Concomitant]
     Dates: start: 20030501, end: 20040509
  4. ADVAIR DISKUS 100/50 [Concomitant]
     Dosage: 100/50 MCG - 2 PUFFS DAILY
     Dates: start: 20030723, end: 20040509
  5. ALBUTEROL [Concomitant]
     Dosage: 2 PUFFS QID
     Route: 055
     Dates: start: 19991104
  6. ALBUTEROL [Concomitant]
     Dosage: MDI PRN
     Route: 055
  7. VEETIDS [Concomitant]
  8. SINGULAIR [Concomitant]
     Dates: start: 20030601
  9. AZMACORT [Concomitant]
     Dosage: 2 PUFFS BID
     Route: 055
     Dates: start: 19991104
  10. AZMACORT [Concomitant]
     Dosage: AS DIRECTED
     Route: 055
     Dates: start: 20020605

REACTIONS (11)
  - ACUTE HEPATIC FAILURE [None]
  - ASPERGILLOSIS [None]
  - BRONCHOPNEUMONIA [None]
  - DIFFUSE ALVEOLAR DAMAGE [None]
  - HEPATIC NECROSIS [None]
  - MULTI-ORGAN FAILURE [None]
  - MYOCARDIAL ISCHAEMIA [None]
  - PNEUMONIA BACTERIAL [None]
  - PNEUMONIA FUNGAL [None]
  - RENAL FAILURE ACUTE [None]
  - SEPSIS [None]
